FAERS Safety Report 23931287 (Version 3)
Quarter: 2025Q3

REPORT INFORMATION
  Report Type: Report from Study
  Country: EU (occurrence: EU)
  Receive Date: 20240603
  Receipt Date: 20250923
  Transmission Date: 20251021
  Serious: Yes (Other)
  Sender: TAKEDA
  Company Number: EU-TAKEDA-2024TUS053075

PATIENT
  Age: 4 Year
  Sex: Male

DRUGS (18)
  1. TEDUGLUTIDE [Suspect]
     Active Substance: TEDUGLUTIDE
     Indication: Short-bowel syndrome
     Dosage: 0.4 MILLIGRAM, QD
     Dates: start: 202102, end: 20210920
  2. TEDUGLUTIDE [Suspect]
     Active Substance: TEDUGLUTIDE
     Dosage: 0.45 MILLIGRAM, QD
     Dates: start: 20210920, end: 20211108
  3. TEDUGLUTIDE [Suspect]
     Active Substance: TEDUGLUTIDE
     Dosage: 0.5 MILLIGRAM, QD
     Dates: start: 20211108, end: 202202
  4. TEDUGLUTIDE [Suspect]
     Active Substance: TEDUGLUTIDE
     Dosage: 0.55 MILLIGRAM, QD
     Dates: start: 202202, end: 20220823
  5. TEDUGLUTIDE [Suspect]
     Active Substance: TEDUGLUTIDE
     Dosage: 0.6 MILLIGRAM, QD
     Dates: start: 20220824, end: 20221212
  6. TEDUGLUTIDE [Suspect]
     Active Substance: TEDUGLUTIDE
     Dosage: 0.5 MILLIGRAM, QD
     Dates: start: 20221213, end: 20231221
  7. TEDUGLUTIDE [Suspect]
     Active Substance: TEDUGLUTIDE
     Dosage: 0.65 MILLIGRAM, QD
     Dates: start: 20231222, end: 20240711
  8. TEDUGLUTIDE [Suspect]
     Active Substance: TEDUGLUTIDE
     Dosage: 0.75 MILLIGRAM, QD
     Dates: start: 20240712
  9. POLYETHYLENE GLYCOLS [Concomitant]
     Active Substance: POLYETHYLENE GLYCOLS
     Indication: Constipation
  10. URSODIOL [Concomitant]
     Active Substance: URSODIOL
     Indication: Bile acids
     Dosage: 62.5 MILLIGRAM, BID
     Dates: start: 20230123
  11. PHYTONADIONE [Concomitant]
     Active Substance: PHYTONADIONE
     Indication: Vitamin K deficiency
     Dosage: 2 MILLIGRAM, 1/WEEK
     Dates: start: 20221011
  12. Glucose electrolyte [Concomitant]
     Indication: Diarrhoea
     Dosage: 4.9 GRAM, QD
     Dates: start: 20201111
  13. Oralpaedon Neutral [Concomitant]
     Indication: Supplementation therapy
     Dosage: 4.9 GRAM, QD
     Dates: start: 20211108
  14. Mct oil [Concomitant]
     Indication: Bottle feeding
     Dosage: 5 MILLILITER, BID
     Dates: start: 20220708
  15. Pancrea [Concomitant]
     Indication: Malnutrition
     Dosage: 2000 INTERNATIONAL UNIT, QID
     Dates: start: 20240612
  16. RIVAROXABAN [Concomitant]
     Active Substance: RIVAROXABAN
     Indication: Thrombosis
     Dosage: 5 MILLIGRAM, BID
     Dates: start: 20240719
  17. CREON [Concomitant]
     Active Substance: PANCRELIPASE AMYLASE\PANCRELIPASE LIPASE\PANCRELIPASE PROTEASE
     Indication: Pancreatic enzymes
  18. RACECADOTRIL [Concomitant]
     Active Substance: RACECADOTRIL
     Indication: Diarrhoea
     Dosage: 20 MILLIGRAM, TID
     Dates: start: 20241007

REACTIONS (5)
  - Mitral valve incompetence [Not Recovered/Not Resolved]
  - Fatigue [Recovered/Resolved]
  - Night sweats [Recovered/Resolved]
  - Mitral valve prolapse [Not Recovered/Not Resolved]
  - Nasopharyngitis [Recovered/Resolved]

NARRATIVE: CASE EVENT DATE: 20230701
